FAERS Safety Report 9157348 (Version 1)
Quarter: 2013Q1

REPORT INFORMATION
  Report Type: Report from Study
  Country: DE (occurrence: DE)
  Receive Date: 20130312
  Receipt Date: 20130312
  Transmission Date: 20140127
  Serious: Yes (Death)
  Sender: FDA-Public Use
  Company Number: DE-ASTELLAS-2013EU002069

PATIENT
  Sex: 0

DRUGS (4)
  1. TACROLIMUS SYSTEMIC [Suspect]
     Indication: HEART TRANSPLANT
     Dosage: UNK
     Route: 065
  2. MYCOPHENOLATE MOFETIL [Suspect]
     Indication: HEART TRANSPLANT
     Dosage: UNK
     Route: 065
  3. METHYLPREDNISOLONE [Concomitant]
     Dosage: 500 MG, UNKNOWN/D
     Route: 042
  4. METHYLPREDNISOLONE [Concomitant]
     Dosage: 125 MG, TID
     Route: 042

REACTIONS (1)
  - Ileus [Fatal]
